FAERS Safety Report 11514874 (Version 1)
Quarter: 2015Q3

REPORT INFORMATION
  Report Type: Spontaneous
  Country: GB (occurrence: GB)
  Receive Date: 20150916
  Receipt Date: 20150916
  Transmission Date: 20151125
  Serious: Yes (Other)
  Sender: FDA-Public Use
  Company Number: GB-UCBSA-2015025198

PATIENT
  Sex: Male
  Weight: 73 kg

DRUGS (5)
  1. NEUPRO [Suspect]
     Active Substance: ROTIGOTINE
     Indication: PARKINSON^S DISEASE
     Dosage: 2 MG
     Route: 062
  2. NEUPRO [Suspect]
     Active Substance: ROTIGOTINE
     Dosage: 6 MG, ONCE DAILY (QD)
     Route: 062
  3. SELEGILINE [Concomitant]
     Active Substance: SELEGILINE
     Indication: PARKINSON^S DISEASE
     Dosage: 1.25 MG, ONCE DAILY (QD)
     Route: 048
  4. NEUPRO [Suspect]
     Active Substance: ROTIGOTINE
     Dosage: 4 MG
     Route: 062
  5. SINEMET-PLUS [Concomitant]
     Active Substance: CARBIDOPA\LEVODOPA
     Indication: PARKINSON^S DISEASE
     Dosage: 25/100, 4X/DAY (QID)
     Route: 048

REACTIONS (8)
  - Application site reaction [Not Recovered/Not Resolved]
  - Application site erythema [Unknown]
  - Application site swelling [Unknown]
  - Application site pruritus [Unknown]
  - Insomnia [Unknown]
  - Inappropriate schedule of drug administration [Unknown]
  - Application site irritation [Unknown]
  - Product quality issue [Unknown]
